FAERS Safety Report 8239829-0 (Version None)
Quarter: 2012Q1

REPORT INFORMATION
  Report Type: 
  Country: None (occurrence: None)
  Receive Date: 20120328
  Receipt Date: 20120323
  Transmission Date: 20120608
  Serious: Yes (Other)
  Sender: FDA-Public Use
  Company Number: PHHY2012BR025898

PATIENT
  Age: 47 Year
  Sex: Male

DRUGS (1)
  1. STARLIX [Suspect]
     Indication: DIABETES MELLITUS
     Dosage: 120 MG, 2 TABLETS A DAY
     Route: 048
     Dates: end: 20120129

REACTIONS (1)
  - LOCALISED INFECTION [None]
